FAERS Safety Report 12315475 (Version 1)
Quarter: 2016Q2

REPORT INFORMATION
  Report Type: Spontaneous
  Country: US (occurrence: US)
  Receive Date: 20160428
  Receipt Date: 20160428
  Transmission Date: 20160815
  Serious: No
  Sender: FDA-Public Use
  Company Number: US-GLAXOSMITHKLINE-US2016051425

PATIENT
  Age: 59 Year
  Sex: Female

DRUGS (8)
  1. CIMETIDINE [Concomitant]
     Active Substance: CIMETIDINE
  2. KLONOPIN [Concomitant]
     Active Substance: CLONAZEPAM
  3. PAXIL [Concomitant]
     Active Substance: PAROXETINE HYDROCHLORIDE
  4. BUPROPION SR PROLONGED-RELEASE TABLET [Concomitant]
     Active Substance: BUPROPION
  5. SPIRIVA [Concomitant]
     Active Substance: TIOTROPIUM BROMIDE MONOHYDRATE
  6. OXYCODONE [Concomitant]
     Active Substance: OXYCODONE
  7. ADVAIR DISKUS [Suspect]
     Active Substance: FLUTICASONE PROPIONATE\SALMETEROL XINAFOATE
     Indication: CHRONIC OBSTRUCTIVE PULMONARY DISEASE
     Dosage: 1 PUFF(S), 1D
     Route: 055
  8. HYDROCHLOROTHIAZIDE. [Concomitant]
     Active Substance: HYDROCHLOROTHIAZIDE

REACTIONS (8)
  - Hypersomnia [Unknown]
  - Body temperature decreased [Unknown]
  - Feeling hot [Unknown]
  - Thirst [Unknown]
  - Expired product administered [Unknown]
  - Malaise [Recovering/Resolving]
  - Diarrhoea [Unknown]
  - Hyperhidrosis [Unknown]

NARRATIVE: CASE EVENT DATE: 20160411
